FAERS Safety Report 6013426-X (Version None)
Quarter: 2008Q4

REPORT INFORMATION
  Report Type: 
  Country: None (occurrence: None)
  Receive Date: 20081219
  Receipt Date: 20081209
  Transmission Date: 20090506
  Serious: Yes (Hospitalization)
  Sender: FDA-Public Use
  Company Number: US-PFIZER INC-2005137700

PATIENT
  Sex: Male
  Weight: 65.32 kg

DRUGS (12)
  1. BLINDED *EFAVIRENZ [Suspect]
     Indication: HIV TEST POSITIVE
     Route: 048
     Dates: start: 20050913, end: 20050927
  2. BLINDED *PLACEBO [Suspect]
     Indication: HIV TEST POSITIVE
     Route: 048
     Dates: start: 20050913, end: 20050927
  3. BLINDED MARAVIROC [Suspect]
     Indication: HIV TEST POSITIVE
     Route: 048
     Dates: start: 20050913, end: 20050927
  4. COMBIVIR [Suspect]
     Indication: HIV TEST POSITIVE
     Dosage: 150/300
     Route: 048
     Dates: start: 20050913, end: 20050927
  5. ASPIRIN [Concomitant]
     Route: 048
     Dates: start: 20050605
  6. DIGITEK [Concomitant]
     Route: 048
     Dates: start: 20050608
  7. ISOSORBIDE MONONITRATE [Concomitant]
     Route: 048
     Dates: start: 20050608
  8. AMIODARONE HYDROCHLORIDE [Concomitant]
     Route: 048
     Dates: start: 20050608
  9. SPIRONOLACTONE [Concomitant]
     Route: 048
     Dates: start: 20050605
  10. LASIX [Concomitant]
     Route: 048
     Dates: start: 20050608
  11. TEMAZEPAM [Concomitant]
     Route: 048
     Dates: start: 20050605
  12. PAXIL [Concomitant]
     Route: 048
     Dates: start: 20050608

REACTIONS (1)
  - HODGKIN'S DISEASE [None]
